FAERS Safety Report 24572974 (Version 2)
Quarter: 2025Q4

REPORT INFORMATION
  Report Type: Report from Study
  Country: BR (occurrence: BR)
  Receive Date: 20241101
  Receipt Date: 20251007
  Transmission Date: 20260118
  Serious: Yes (Hospitalization)
  Sender: GENMAB
  Company Number: BR-ABBVIE-5969035

PATIENT
  Age: 75 Year
  Sex: Male
  Weight: 92 kg

DRUGS (16)
  1. EPCORITAMAB [Suspect]
     Active Substance: EPCORITAMAB
     Indication: Diffuse large B-cell lymphoma
     Dosage: CYCLE 1, D1 - 48 MG/ML
     Route: 058
     Dates: start: 20240319, end: 20240319
  2. EPCORITAMAB [Suspect]
     Active Substance: EPCORITAMAB
     Dosage: CYCLE 1, D8
     Route: 058
     Dates: start: 20240326, end: 20240326
  3. EPCORITAMAB [Suspect]
     Active Substance: EPCORITAMAB
     Dosage: CYCLE 1, D15
     Route: 058
     Dates: start: 20240402, end: 20240402
  4. EPCORITAMAB [Suspect]
     Active Substance: EPCORITAMAB
     Dosage: CYCLE 1, D22
     Route: 058
     Dates: start: 20240409, end: 20240409
  5. EPCORITAMAB [Suspect]
     Active Substance: EPCORITAMAB
     Dosage: CYCLE 2, D1
     Route: 058
     Dates: start: 20240416, end: 20240416
  6. EPCORITAMAB [Suspect]
     Active Substance: EPCORITAMAB
     Dosage: UNK
     Route: 058
     Dates: start: 20240423, end: 20241008
  7. EPCORITAMAB [Suspect]
     Active Substance: EPCORITAMAB
     Dosage: CYCLE 3, D8
     Route: 058
     Dates: start: 20240528, end: 20240528
  8. EPCORITAMAB [Suspect]
     Active Substance: EPCORITAMAB
     Dosage: CYCLE 3, D15
     Route: 058
     Dates: start: 20240604, end: 20240604
  9. EPCORITAMAB [Suspect]
     Active Substance: EPCORITAMAB
     Dosage: CYCLE 3, D22
     Route: 058
     Dates: start: 20240611, end: 20240611
  10. EPCORITAMAB [Suspect]
     Active Substance: EPCORITAMAB
     Dosage: CYCLE 4, D1
     Route: 058
     Dates: start: 20240625, end: 20240625
  11. EPCORITAMAB [Suspect]
     Active Substance: EPCORITAMAB
     Dosage: CYCLE 4, D15
     Route: 058
     Dates: start: 20240710, end: 20240710
  12. EPCORITAMAB [Suspect]
     Active Substance: EPCORITAMAB
     Dosage: CYCLE 5, D1
     Route: 058
     Dates: start: 20240723, end: 20240723
  13. EPCORITAMAB [Suspect]
     Active Substance: EPCORITAMAB
     Dosage: CYCLE 5, D15
     Route: 058
     Dates: start: 20240827, end: 20240827
  14. EPCORITAMAB [Suspect]
     Active Substance: EPCORITAMAB
     Dosage: CYCLE 6, D1
     Route: 058
     Dates: start: 20240910, end: 20240910
  15. EPCORITAMAB [Suspect]
     Active Substance: EPCORITAMAB
     Dosage: CYCLE 6, D15
     Route: 058
     Dates: start: 20240924, end: 20240924
  16. EPCORITAMAB [Suspect]
     Active Substance: EPCORITAMAB
     Dosage: CYCLE 7, D1
     Route: 058
     Dates: start: 20241008, end: 20241008

REACTIONS (5)
  - Skin infection [Recovered/Resolved]
  - Unevaluable event [Recovered/Resolved]
  - Erythema [Recovered/Resolved]
  - Erythema [Recovered/Resolved]
  - Oedema peripheral [Recovered/Resolved]

NARRATIVE: CASE EVENT DATE: 20240724
